FAERS Safety Report 5052990-4 (Version None)
Quarter: 2006Q3

REPORT INFORMATION
  Report Type: 
  Country: None (occurrence: None)
  Receive Date: 20060712
  Receipt Date: 20060630
  Transmission Date: 20061208
  Serious: Yes (Other)
  Sender: FDA-Public Use
  Company Number: 2006083343

PATIENT
  Age: 51 Year
  Sex: Male
  Weight: 82.5547 kg

DRUGS (6)
  1. LIPITOR [Suspect]
     Indication: BLOOD CHOLESTEROL INCREASED
     Dosage: 80 MG (80 MG, DAILY)
     Dates: start: 20040101
  2. PLAVIX [Concomitant]
  3. TRICOR [Concomitant]
  4. ALL OTHER THERAPEUTIC PRODUCTS [Concomitant]
  5. COREG [Concomitant]
  6. IMDUR [Concomitant]

REACTIONS (7)
  - DIABETIC NEUROPATHY [None]
  - DIALYSIS [None]
  - HEPATIC ENZYME INCREASED [None]
  - PROTEIN TOTAL DECREASED [None]
  - RENAL FAILURE [None]
  - VASCULAR BYPASS GRAFT [None]
  - YELLOW SKIN [None]
